FAERS Safety Report 6832078-X (Version None)
Quarter: 2010Q3

REPORT INFORMATION
  Report Type: 
  Country: None (occurrence: None)
  Receive Date: 20100712
  Receipt Date: 20100701
  Transmission Date: 20110219
  Serious: Yes (Hospitalization)
  Sender: FDA-Public Use
  Company Number: US-ROCHE-713730

PATIENT
  Sex: Female

DRUGS (17)
  1. ACTEMRA [Suspect]
     Indication: RHEUMATOID ARTHRITIS
     Dosage: FIRST INFUSION.
     Route: 042
     Dates: start: 20100519
  2. GLUCOPHAGE [Concomitant]
  3. PRANDIN [Concomitant]
  4. ATIVAN [Concomitant]
     Indication: SOMNOLENCE
  5. AMBIEN [Concomitant]
     Indication: SOMNOLENCE
  6. LASIX [Concomitant]
  7. PREDNISONE [Concomitant]
  8. BENADRYL [Concomitant]
  9. PLAQUENIL [Concomitant]
  10. FOLIC ACID [Concomitant]
  11. DRISDOL [Concomitant]
  12. LEVOXYL [Concomitant]
     Indication: HYPOTHYROIDISM
  13. NEXIUM [Concomitant]
     Indication: GASTRIC DISORDER
  14. ZETIA [Concomitant]
  15. LISINOPRIL [Concomitant]
     Indication: PROPHYLAXIS
  16. CODEINE [Concomitant]
     Indication: ANALGESIC THERAPY
  17. CELEBREX [Concomitant]
     Indication: ANALGESIC THERAPY

REACTIONS (5)
  - BLOOD CHOLESTEROL INCREASED [None]
  - GASTRIC INFECTION [None]
  - GASTROOESOPHAGEAL REFLUX DISEASE [None]
  - LIVER FUNCTION TEST ABNORMAL [None]
  - SINUSITIS [None]
